FAERS Safety Report 7334532-3 (Version None)
Quarter: 2011Q1

REPORT INFORMATION
  Report Type: 
  Country: None (occurrence: None)
  Receive Date: 20110307
  Receipt Date: 20110104
  Transmission Date: 20110831
  Serious: No
  Sender: FDA-Public Use
  Company Number: US-KINGPHARMUSA00001-K201100086

PATIENT
  Sex: Male

DRUGS (2)
  1. EMBEDA [Suspect]
     Indication: BACK PAIN
  2. EMBEDA [Suspect]
     Indication: MUSCULOSKELETAL PAIN
     Dosage: UNK
     Route: 048
     Dates: start: 20100101, end: 20100101

REACTIONS (1)
  - FEELING ABNORMAL [None]
